FAERS Safety Report 13532214 (Version 2)
Quarter: 2017Q2

REPORT INFORMATION
  Report Type: Spontaneous
  Country: US (occurrence: US)
  Receive Date: 20170510
  Receipt Date: 20170619
  Transmission Date: 20170830
  Serious: No
  Sender: FDA-Public Use
  Company Number: US-TAIHO ONCOLOGY INC-EU-2017-00741

PATIENT
  Sex: Female
  Weight: 60.84 kg

DRUGS (3)
  1. AMBIEN [Concomitant]
     Active Substance: ZOLPIDEM TARTRATE
     Dates: start: 20170329
  2. LONSURF [Suspect]
     Active Substance: TIPIRACIL HYDROCHLORIDE\TRIFLURIDINE
     Indication: COLON CANCER
     Dosage: 3 TABLETS (60MG) AM AND 2 TABS (40MG) AT NIGHT; CYCLE 1
     Route: 048
     Dates: start: 20170329, end: 20170428
  3. LYRICA [Concomitant]
     Active Substance: PREGABALIN
     Dates: start: 20170329

REACTIONS (1)
  - Disease progression [Unknown]

NARRATIVE: CASE EVENT DATE: 2017
